FAERS Safety Report 21456189 (Version 1)
Quarter: 2022Q4

REPORT INFORMATION
  Report Type: Spontaneous
  Country: IT (occurrence: IT)
  Receive Date: 20221014
  Receipt Date: 20221014
  Transmission Date: 20230112
  Serious: Yes (Other)
  Sender: FDA-Public Use
  Company Number: IT-MINISAL02-887330

PATIENT
  Age: 71 Year
  Sex: Male
  Weight: 80 kg

DRUGS (1)
  1. CELECOXIB [Suspect]
     Active Substance: CELECOXIB
     Indication: Implant site calcification
     Dosage: 200 MILLIGRAM (200MG ONE TABLET A DAY AT 8:00)
     Route: 048
     Dates: start: 20220922, end: 20220925

REACTIONS (1)
  - Nephritis allergic [Not Recovered/Not Resolved]

NARRATIVE: CASE EVENT DATE: 20220923
